FAERS Safety Report 5573176-0 (Version None)
Quarter: 2007Q4

REPORT INFORMATION
  Report Type: 
  Country: None (occurrence: None)
  Receive Date: 20071224
  Receipt Date: 20071213
  Transmission Date: 20080405
  Serious: Yes (Disabling, Other)
  Sender: FDA-Public Use
  Company Number: FR-AVENTIS-200712457FR

PATIENT
  Age: 61 Year
  Sex: Male
  Weight: 66 kg

DRUGS (3)
  1. CALSYN                             /00371903/ [Suspect]
     Route: 058
     Dates: start: 20070702, end: 20070717
  2. TEMERIT [Concomitant]
     Route: 048
  3. PRITOR                             /01421801/ [Concomitant]
     Route: 048

REACTIONS (5)
  - CATARACT [None]
  - COLOUR BLINDNESS [None]
  - PHOTOPHOBIA [None]
  - VISION BLURRED [None]
  - VISUAL ACUITY REDUCED [None]
